FAERS Safety Report 6687984-6 (Version None)
Quarter: 2010Q2

REPORT INFORMATION
  Report Type: 
  Country: None (occurrence: None)
  Receive Date: 20100420
  Receipt Date: 20100414
  Transmission Date: 20101027
  Serious: Yes (Other)
  Sender: FDA-Public Use
  Company Number: RO-BRISTOL-MYERS SQUIBB COMPANY-14701783

PATIENT
  Age: 37 Year
  Sex: Female

DRUGS (2)
  1. ABILIFY [Suspect]
     Indication: PSYCHOTIC DISORDER
     Dosage: DAILY DOSE OF ABILIFY WAS 15 MG FROM 2006 TILL MAY07, AFTER THAT 10MG/D
     Dates: start: 20060101
  2. CLONAZEPAM [Suspect]
     Dates: start: 20081101, end: 20090201

REACTIONS (3)
  - CAESAREAN SECTION [None]
  - NORMAL NEWBORN [None]
  - PREGNANCY [None]
